FAERS Safety Report 24581542 (Version 1)
Quarter: 2024Q4

REPORT INFORMATION
  Report Type: Report from Study
  Country: CA (occurrence: CA)
  Receive Date: 20241105
  Receipt Date: 20241105
  Transmission Date: 20250115
  Serious: Yes (Other)
  Sender: ABBVIE
  Company Number: CA-ABBVIE-5984188

PATIENT
  Age: 23 Year
  Sex: Female

DRUGS (1)
  1. SKYRIZI [Suspect]
     Active Substance: RISANKIZUMAB-RZAA
     Indication: Crohn^s disease
     Route: 058
     Dates: start: 20230526

REACTIONS (15)
  - Ileocolectomy [Recovering/Resolving]
  - Ligament rupture [Unknown]
  - Asthenia [Recovering/Resolving]
  - Bowel movement irregularity [Not Recovered/Not Resolved]
  - Constipation [Unknown]
  - Diarrhoea [Unknown]
  - Gastrointestinal wall thickening [Unknown]
  - Gastrointestinal motility disorder [Not Recovered/Not Resolved]
  - Abdominal pain [Not Recovered/Not Resolved]
  - Musculoskeletal stiffness [Not Recovered/Not Resolved]
  - Nausea [Not Recovered/Not Resolved]
  - Abdominal distension [Not Recovered/Not Resolved]
  - Ileal stenosis [Recovering/Resolving]
  - Ileal ulcer [Recovering/Resolving]
  - Frequent bowel movements [Unknown]

NARRATIVE: CASE EVENT DATE: 20231025
